FAERS Safety Report 26207413 (Version 1)
Quarter: 2025Q4

REPORT INFORMATION
  Report Type: Spontaneous
  Country: US (occurrence: US)
  Receive Date: 20251229
  Receipt Date: 20251229
  Transmission Date: 20260117
  Serious: Yes (Death, Hospitalization)
  Sender: AMGEN
  Company Number: US-AMGEN-USASP2025250853

PATIENT
  Age: 18 Year
  Sex: Female

DRUGS (2)
  1. PREDNISONE [Suspect]
     Active Substance: PREDNISONE
     Indication: Hypereosinophilic syndrome
     Dosage: UNK
     Route: 065
  2. HYDROXYUREA [Concomitant]
     Active Substance: HYDROXYUREA
     Dosage: UNK
     Route: 065

REACTIONS (3)
  - Cardio-respiratory arrest [Fatal]
  - Bronchitis [Unknown]
  - Off label use [Unknown]
